FAERS Safety Report 23326342 (Version 1)
Quarter: 2023Q4

REPORT INFORMATION
  Report Type: Spontaneous
  Country: CN (occurrence: CN)
  Receive Date: 20231221
  Receipt Date: 20231221
  Transmission Date: 20240109
  Serious: Yes (Life-Threatening)
  Sender: FDA-Public Use
  Company Number: CN-BAYER-2023A182379

PATIENT
  Age: 61 Year
  Sex: Male
  Weight: 45 kg

DRUGS (1)
  1. AVELOX [Suspect]
     Active Substance: MOXIFLOXACIN HYDROCHLORIDE
     Indication: Pulmonary tuberculosis
     Dosage: 400 MG, QD
     Route: 048
     Dates: start: 20231206, end: 20231215

REACTIONS (10)
  - Loss of consciousness [Recovered/Resolved]
  - Unresponsive to stimuli [Recovered/Resolved]
  - Generalised tonic-clonic seizure [Recovering/Resolving]
  - Vertigo [Recovered/Resolved]
  - Trismus [None]
  - Eye movement disorder [None]
  - Foaming at mouth [None]
  - Cyanosis [Recovered/Resolved]
  - Respiratory rate increased [None]
  - Off label use [None]

NARRATIVE: CASE EVENT DATE: 20231201
